FAERS Safety Report 9895468 (Version 2)
Quarter: 2014Q1

REPORT INFORMATION
  Report Type: Spontaneous
  Country: US (occurrence: US)
  Receive Date: 20140213
  Receipt Date: 20140213
  Transmission Date: 20141002
  Serious: No
  Sender: FDA-Public Use
  Company Number: US-BRISTOL-MYERS SQUIBB COMPANY-18712455

PATIENT
  Age: 34 Year
  Sex: Male
  Weight: 99.77 kg

DRUGS (1)
  1. ABATACEPT SUBQ INJECTION 125MG/ML [Suspect]
     Indication: RHEUMATOID ARTHRITIS
     Route: 058
     Dates: start: 201301

REACTIONS (2)
  - Drug dose omission [Not Recovered/Not Resolved]
  - Incorrect product storage [Not Recovered/Not Resolved]
